FAERS Safety Report 16869389 (Version 4)
Quarter: 2019Q4

REPORT INFORMATION
  Report Type: Spontaneous
  Country: US (occurrence: US)
  Receive Date: 20190930
  Receipt Date: 20191127
  Transmission Date: 20200122
  Serious: Yes (Other)
  Sender: FDA-Public Use
  Company Number: US-SAOL THERAPEUTICS-2019SAO00387

PATIENT
  Age: 75 Year
  Sex: Female
  Weight: 69.57 kg

DRUGS (16)
  1. LIORESAL [Suspect]
     Active Substance: BACLOFEN
     Dosage: UNK
  2. VALIUM [Concomitant]
     Active Substance: DIAZEPAM
  3. ASA [Concomitant]
     Active Substance: ASPIRIN
  4. PANTOPRAZOLE [Concomitant]
     Active Substance: PANTOPRAZOLE
  5. ATORVASTATIN [Concomitant]
     Active Substance: ATORVASTATIN
  6. METOPROLOL. [Concomitant]
     Active Substance: METOPROLOL
  7. VITAMIN D3 [Concomitant]
     Active Substance: CHOLECALCIFEROL
  8. LIORESAL [Suspect]
     Active Substance: BACLOFEN
     Indication: MUSCLE SPASTICITY
     Dosage: UNK
     Dates: start: 1997
  9. LIORESAL [Suspect]
     Active Substance: BACLOFEN
     Dosage: UNK
     Route: 037
  10. GENERLAC [Concomitant]
     Active Substance: LACTULOSE
  11. CARTIA [Concomitant]
  12. LIORESAL [Suspect]
     Active Substance: BACLOFEN
     Indication: HYPERREFLEXIA
     Dosage: UNK
     Route: 037
  13. LIORESAL [Suspect]
     Active Substance: BACLOFEN
     Dosage: UNK
     Route: 037
  14. PRESERVISION [Concomitant]
     Active Substance: MINERALS\VITAMINS
  15. FIORINAL [Concomitant]
     Active Substance: ASPIRIN\BUTALBITAL\CAFFEINE
  16. TYLENOL EXTRA STRENGTH [Concomitant]
     Active Substance: ACETAMINOPHEN

REACTIONS (9)
  - Device dislocation [Recovered/Resolved]
  - Hyperexplexia [Recovering/Resolving]
  - Implant site warmth [Recovered/Resolved]
  - Fall [Recovering/Resolving]
  - Paraesthesia [Recovered/Resolved]
  - Delayed recovery from anaesthesia [Recovered/Resolved]
  - Pain [Recovered/Resolved]
  - Urinary tract infection [Unknown]
  - Complication associated with device [Recovered/Resolved]

NARRATIVE: CASE EVENT DATE: 2018
